FAERS Safety Report 7412953-8 (Version None)
Quarter: 2011Q2

REPORT INFORMATION
  Report Type: 
  Country: None (occurrence: None)
  Receive Date: 20110405
  Receipt Date: 20110323
  Transmission Date: 20111010
  Serious: Yes (Death)
  Sender: FDA-Public Use
  Company Number: 2011001420

PATIENT
  Age: 38 Year
  Sex: Male

DRUGS (6)
  1. ERLOTINIB (ERLOTINIB) (TABLET) (ERLOTINIB) [Suspect]
     Indication: HEAD AND NECK CANCER
     Dosage: 150 MG, QD, ORAL
     Route: 048
     Dates: start: 20110323
  2. CISPLATIN [Concomitant]
  3. ACETAMINOPHEN [Concomitant]
  4. LYRICA [Concomitant]
  5. FLUOROURACIL [Concomitant]
  6. TAXOL [Concomitant]

REACTIONS (1)
  - DEATH [None]
